FAERS Safety Report 6644410-0 (Version None)
Quarter: 2010Q1

REPORT INFORMATION
  Report Type: 
  Country: None (occurrence: None)
  Receive Date: 20100317
  Receipt Date: 20100302
  Transmission Date: 20100710
  Serious: Yes (Other)
  Sender: FDA-Public Use
  Company Number: 2010AP000423

PATIENT
  Age: 68 Year
  Sex: Female

DRUGS (5)
  1. SIMVASTATIN [Suspect]
  2. CLARITHROMYCIN [Suspect]
  3. QUETIAPINE (QUETIAPINE) [Concomitant]
  4. LITHIUM CARBONATE [Concomitant]
  5. PERICIAZINE (PERICIAZINE) [Concomitant]

REACTIONS (4)
  - BLOOD CREATINE PHOSPHOKINASE INCREASED [None]
  - DRUG INTERACTION [None]
  - MYALGIA [None]
  - NEUROLEPTIC MALIGNANT SYNDROME [None]
